FAERS Safety Report 9670303 (Version 1)
Quarter: 2013Q4

REPORT INFORMATION
  Report Type: Spontaneous
  Country: US (occurrence: US)
  Receive Date: 20131105
  Receipt Date: 20131105
  Transmission Date: 20140711
  Serious: Yes (Hospitalization, Other)
  Sender: FDA-Public Use
  Company Number: US-ABBVIE-13P-163-1163451-00

PATIENT
  Sex: Male
  Weight: 90.8 kg

DRUGS (16)
  1. HUMIRA [Suspect]
     Indication: COLITIS ULCERATIVE
     Dates: start: 201302
  2. HUMIRA [Suspect]
     Indication: RHEUMATOID ARTHRITIS
  3. UNKNOWN BLOOD PRESSURE DRUG [Suspect]
     Indication: BLOOD PRESSURE
  4. ATROVASTIN [Concomitant]
     Indication: BLOOD CHOLESTEROL
  5. AZOR [Concomitant]
     Indication: BLOOD PRESSURE
  6. AZOR [Concomitant]
     Indication: BLOOD CHOLESTEROL
  7. BRIMONDONE TARTRATE [Concomitant]
     Indication: GLAUCOMA
  8. CARVEDILOL [Concomitant]
     Indication: BLOOD PRESSURE
  9. CARVEDILOL [Concomitant]
     Indication: BLOOD CHOLESTEROL
  10. CYMBALTA [Concomitant]
     Indication: NEUROPATHY PERIPHERAL
  11. FOLIC ACID [Concomitant]
     Indication: VITAMIN SUPPLEMENTATION
  12. HUMALOG [Concomitant]
     Indication: DIABETES MELLITUS
  13. HUMALOG N [Concomitant]
     Indication: DIABETES MELLITUS
  14. HYDROXYCHLORAQUINE [Concomitant]
     Indication: COLITIS ULCERATIVE
  15. LIALDA [Concomitant]
     Indication: COLITIS ULCERATIVE
  16. LUMIGAN [Concomitant]
     Indication: GLAUCOMA

REACTIONS (6)
  - Impaired healing [Recovering/Resolving]
  - Pain in extremity [Recovering/Resolving]
  - Upper limb fracture [Recovering/Resolving]
  - Syncope [Recovered/Resolved]
  - Fall [Recovered/Resolved]
  - Medical device complication [Unknown]
